FAERS Safety Report 21098299 (Version 1)
Quarter: 2022Q3

REPORT INFORMATION
  Report Type: Spontaneous
  Country: CN (occurrence: CN)
  Receive Date: 20220719
  Receipt Date: 20220719
  Transmission Date: 20221026
  Serious: Yes (Hospitalization)
  Sender: FDA-Public Use
  Company Number: CN-SA-SAC20220717000105

PATIENT
  Age: 68 Year
  Sex: Male
  Weight: 71 kg

DRUGS (2)
  1. PLAVIX [Suspect]
     Active Substance: CLOPIDOGREL BISULFATE
     Indication: Coronary artery disease
     Dosage: 75MG, NUMBER OF USE 1 DAY NUMBER OF USE 1
     Route: 048
     Dates: start: 20211130, end: 20220614
  2. METOPROLOL SUCCINATE [Concomitant]
     Active Substance: METOPROLOL SUCCINATE
     Indication: Hypertension
     Dosage: NUMBER OF USE 1 DAY NUMBER OF USE 1
     Route: 048
     Dates: start: 20170310, end: 20220614

REACTIONS (3)
  - Back pain [Recovering/Resolving]
  - Abdominal pain upper [Recovering/Resolving]
  - Abdominal pain [Recovering/Resolving]

NARRATIVE: CASE EVENT DATE: 20220614
